FAERS Safety Report 22266461 (Version 2)
Quarter: 2023Q2

REPORT INFORMATION
  Report Type: Spontaneous
  Country: CH (occurrence: CH)
  Receive Date: 20230428
  Receipt Date: 20230512
  Transmission Date: 20230722
  Serious: Yes (Hospitalization)
  Sender: FDA-Public Use
  Company Number: CH-TEVA-2023-CH-2880327

PATIENT
  Age: 7 Decade
  Sex: Male

DRUGS (11)
  1. DEXAMETHASONE [Suspect]
     Active Substance: DEXAMETHASONE
     Indication: Cytokine release syndrome
     Dosage: 40 MILLIGRAM DAILY; ON DAYS 3-4 , ONCE A DAY
     Route: 042
  2. DEXAMETHASONE [Suspect]
     Active Substance: DEXAMETHASONE
     Dosage: 80 MILLIGRAM DAILY; ON DAYS 5-8 , ONCE A DAY
     Route: 042
  3. DEXAMETHASONE [Suspect]
     Active Substance: DEXAMETHASONE
     Dosage: 40 MILLIGRAM DAILY; ON DAYS 9-12 , ONCE A DAY
     Route: 042
  4. DEXAMETHASONE [Suspect]
     Active Substance: DEXAMETHASONE
     Dosage: 10 MILLIGRAM DAILY; DAYS 13-14 , ONCE A DAY
     Route: 042
  5. DEXAMETHASONE [Suspect]
     Active Substance: DEXAMETHASONE
     Dosage: 8 MILLIGRAM DAILY; ON DAY 15 , ONCE A DAY
     Route: 042
  6. DEXAMETHASONE [Suspect]
     Active Substance: DEXAMETHASONE
     Dosage: 4 MILLIGRAM DAILY; ON DAY 16 , ONCE A DAY
     Route: 042
  7. DEXAMETHASONE [Suspect]
     Active Substance: DEXAMETHASONE
     Dosage: 2 MILLIGRAM DAILY; DAYS 17-19 , ONCE A DAY
     Route: 042
  8. DEXAMETHASONE [Suspect]
     Active Substance: DEXAMETHASONE
     Dosage: 1 MILLIGRAM DAILY; DAYS 20-23, ONCE A DAY , ADDITIONAL INFO: DEXAMETHASONE WAS STOPPED ON DAY 23.
     Route: 042
  9. TOCILIZUMAB [Suspect]
     Active Substance: TOCILIZUMAB
     Indication: Cytokine release syndrome
     Dosage: 8 MG/KG, 700MG,TOTAL 5 DOSES WERE ADMINISTERED BETWEEN DAYS 1 AND 4 , ADDITIONAL INFO: NOT ADMINISTE
     Route: 065
  10. SILTUXIMAB [Suspect]
     Active Substance: SILTUXIMAB
     Indication: Cytokine release syndrome
     Dosage: RECEIVED ONE DOSE , ADDITIONAL INFO: ACTION TAKEN: NOT ADMINISTERED ANY FURTHER
     Route: 065
  11. TISAGENLECLEUCEL [Suspect]
     Active Substance: TISAGENLECLEUCEL
     Indication: Diffuse large B-cell lymphoma stage IV
     Dosage: ADDITIONAL INFO: ROUTE: {INFUSION}
     Route: 050

REACTIONS (3)
  - Cytokine release syndrome [Recovered/Resolved]
  - Immune effector cell-associated neurotoxicity syndrome [Recovered/Resolved]
  - Drug ineffective [Unknown]
